FAERS Safety Report 5209527-6 (Version None)
Quarter: 2007Q1

REPORT INFORMATION
  Report Type: 
  Country: None (occurrence: None)
  Receive Date: 20070116
  Receipt Date: 20070105
  Transmission Date: 20070707
  Serious: Yes (Other)
  Sender: FDA-Public Use
  Company Number: US-PFIZER INC-2007002503

PATIENT
  Sex: Female
  Weight: 60.8 kg

DRUGS (2)
  1. DEPO-SUBQ PROVERA 104 [Suspect]
     Route: 058
     Dates: start: 20060601, end: 20060601
  2. DEPO-SUBQ PROVERA 104 [Suspect]
     Route: 058
     Dates: start: 20060901, end: 20060901

REACTIONS (4)
  - INJECTION SITE INDURATION [None]
  - LYMPHADENOPATHY [None]
  - PRURITUS [None]
  - WEIGHT DECREASED [None]
